FAERS Safety Report 22266487 (Version 1)
Quarter: 2023Q2

REPORT INFORMATION
  Report Type: Spontaneous
  Country: US (occurrence: US)
  Receive Date: 20230428
  Receipt Date: 20230428
  Transmission Date: 20230722
  Serious: No
  Sender: FDA-Public Use
  Company Number: US-TEVA-2023-US-2877753

PATIENT
  Age: 57 Year
  Sex: Male

DRUGS (1)
  1. NALOXONE HYDROCHLORIDE [Suspect]
     Active Substance: NALOXONE HYDROCHLORIDE
     Indication: Product used for unknown indication
     Dosage: 4 MG
     Route: 045

REACTIONS (4)
  - Rhinorrhoea [Unknown]
  - Diarrhoea [Unknown]
  - Yawning [Unknown]
  - Prescription drug used without a prescription [Unknown]
